FAERS Safety Report 12397040 (Version 1)
Quarter: 2016Q2

REPORT INFORMATION
  Report Type: Spontaneous
  Country: US (occurrence: None)
  Receive Date: 20160523
  Receipt Date: 20160523
  Transmission Date: 20160815
  Serious: No
  Sender: FDA-Public Use
  Company Number: None

PATIENT
  Age: 50 Year
  Sex: Female

DRUGS (7)
  1. CLONAZEPAM. [Concomitant]
     Active Substance: CLONAZEPAM
  2. HARVONI [Suspect]
     Active Substance: LEDIPASVIR\SOFOSBUVIR
     Indication: HEPATITIS C
     Dosage: 1 TAB DAILY ORAL
     Route: 048
     Dates: start: 20160229
  3. PAROXETINE. [Concomitant]
     Active Substance: PAROXETINE
  4. SUSTIVA [Concomitant]
     Active Substance: EFAVIRENZ
  5. EPZICOM [Concomitant]
     Active Substance: ABACAVIR SULFATE\LAMIVUDINE
  6. LYRICA [Concomitant]
     Active Substance: PREGABALIN
  7. IBUPROFEN. [Concomitant]
     Active Substance: IBUPROFEN

REACTIONS (4)
  - Dry skin [None]
  - Diarrhoea [None]
  - Urticaria [None]
  - Skin exfoliation [None]

NARRATIVE: CASE EVENT DATE: 201605
